FAERS Safety Report 11749785 (Version 1)
Quarter: 2015Q4

REPORT INFORMATION
  Report Type: Spontaneous
  Country: US (occurrence: None)
  Receive Date: 20151116
  Receipt Date: 20151116
  Transmission Date: 20160304
  Serious: Yes (Hospitalization)
  Sender: FDA-Public Use
  Company Number: None

PATIENT
  Age: 87 Year
  Sex: Male
  Weight: 74 kg

DRUGS (2)
  1. ENOXAPARIN [Suspect]
     Active Substance: ENOXAPARIN
     Indication: ATRIAL FIBRILLATION
     Dosage: 80 MG ?BID ?SQ
     Route: 058
     Dates: start: 20151010, end: 20151020
  2. WARFARIN [Suspect]
     Active Substance: WARFARIN
     Indication: ATRIAL FIBRILLATION
     Route: 048
     Dates: start: 20151010, end: 20151020

REACTIONS (4)
  - Fall [None]
  - International normalised ratio decreased [None]
  - Subdural haemorrhage [None]
  - Head injury [None]

NARRATIVE: CASE EVENT DATE: 20151020
